FAERS Safety Report 4483923-7 (Version None)
Quarter: 2004Q4

REPORT INFORMATION
  Report Type: 
  Country: None (occurrence: None)
  Receive Date: 20041020
  Receipt Date: 20041013
  Transmission Date: 20050328
  Serious: Yes (Hospitalization)
  Sender: FDA-Public Use
  Company Number: 2004UW21323

PATIENT
  Age: 55 Year
  Sex: Male
  Weight: 77.11 kg

DRUGS (3)
  1. NEXIUM [Suspect]
     Indication: GASTROOESOPHAGEAL REFLUX DISEASE
     Dosage: 40 MG QD PO
     Route: 048
     Dates: start: 20010101
  2. LIPITOR [Concomitant]
  3. STEROIDS [Concomitant]

REACTIONS (2)
  - HYPOAESTHESIA [None]
  - SKIN DISCOLOURATION [None]
